FAERS Safety Report 18531749 (Version 4)
Quarter: 2020Q4

REPORT INFORMATION
  Report Type: Other
  Country: US (occurrence: US)
  Receive Date: 20201123
  Receipt Date: 20201225
  Transmission Date: 20210114
  Serious: Yes (Other)
  Sender: FDA-Public Use
  Company Number: US-ROCHE-2704399

PATIENT
  Age: 65 Year
  Sex: Female

DRUGS (21)
  1. MORPHINE [Concomitant]
     Active Substance: MORPHINE
     Dosage: TAKE 1 TABLET (15 MG TOTAL) BY MOUTH EVERY 8 HOURS 2 PM AND BEDTIME DOSED. TAKE 30 MG MORNING , 15 A
     Route: 048
     Dates: start: 20200902
  2. MORPHINE [Concomitant]
     Active Substance: MORPHINE
     Dosage: TAKE 1 TABLET BY MOUTH DAILY WITH BREAKFAST.
     Route: 048
     Dates: start: 20200902
  3. ELIQUIS [Concomitant]
     Active Substance: APIXABAN
     Indication: THROMBOSIS
     Dosage: TAKE 2 TABLETS (10 MG) BY MOUTH TWICE DAILY FOR 7 DAYS FOLLOWED BY 1 TABLET (5?MG)TWICE DAILY.
     Route: 048
     Dates: start: 20200717
  4. ELIQUIS [Concomitant]
     Active Substance: APIXABAN
     Dosage: TAKE 1 TABLET BY MOUTH TWICE A DAY
     Route: 048
     Dates: start: 20201007
  5. CHOLECALCIFEROL [Concomitant]
     Active Substance: CHOLECALCIFEROL
     Dosage: TAKE 400 UNIT BY MOUTH DAILY
     Route: 048
  6. MORPHINE [Concomitant]
     Active Substance: MORPHINE
     Dosage: TAKE 1 TABLET BY MOUTH EVERY 4 HOURS AS NEEDED
     Route: 048
     Dates: start: 20200902
  7. XELODA [Suspect]
     Active Substance: CAPECITABINE
     Route: 048
     Dates: start: 20200616
  8. APIXABAN [Concomitant]
     Active Substance: APIXABAN
     Dosage: TAKE 2 TABLETS (10 MG) BY MOUTH TWICE DAILY FOR 7 DAYS FOLLOWED BY 1 TABLET (5 MG)TWICE DAILY.
     Route: 048
     Dates: start: 20200717
  9. APIXABAN [Concomitant]
     Active Substance: APIXABAN
     Dosage: TAKE 1 TABLET BY MOUTH TWICE A DAY
     Route: 048
     Dates: start: 20201007
  10. OLANZAPINE. [Concomitant]
     Active Substance: OLANZAPINE
     Dosage: TAKE 0.5 TABLET (2.5 MG TOTAL)BY MOUTH AT BEDTIME
     Route: 048
     Dates: start: 20201007
  11. XELODA [Suspect]
     Active Substance: CAPECITABINE
     Indication: BREAST CANCER METASTATIC
     Dosage: TAKE THREE TABLETS (1500 MG TOTAL) BY MOUTH TWICE DAILY FOR 14 DAYS FOLLOWED BY 7 DAYS OFF, THEN REP
     Route: 048
     Dates: start: 20201001
  12. DEXAMETHASONE. [Concomitant]
     Active Substance: DEXAMETHASONE
     Route: 048
     Dates: start: 20200612
  13. FUROSEMIDE. [Concomitant]
     Active Substance: FUROSEMIDE
     Dosage: TAKE 1 TABLET BY MOUTH DAILY
     Route: 048
     Dates: start: 20201007
  14. LASIX [Concomitant]
     Active Substance: FUROSEMIDE
     Indication: FLUID RETENTION
     Dosage: TAKE 1 TABLET BY MOUTH DAILY
     Route: 048
     Dates: start: 20201007
  15. ASCORBIC ACID. [Concomitant]
     Active Substance: ASCORBIC ACID
     Route: 048
  16. GABAPENTIN. [Concomitant]
     Active Substance: GABAPENTIN
     Dosage: TAKE 2 CAPSULES (600 MG TOTAL) BY MOUTH AT BEDTIME.
     Route: 048
     Dates: start: 20200902
  17. PROMETHAZINE [Concomitant]
     Active Substance: PROMETHAZINE HYDROCHLORIDE
     Dosage: TAKE 1 TABLET (25 MG TOTAL) BY MOUTH EVERY 8 HOURS AS NEEDED
     Route: 048
     Dates: start: 20200902
  18. NERATINIB [Concomitant]
     Active Substance: NERATINIB
     Dosage: TAKE 6 TABLETS
     Route: 048
     Dates: start: 20201001
  19. XELODA [Suspect]
     Active Substance: CAPECITABINE
     Indication: METASTASES TO CENTRAL NERVOUS SYSTEM
     Dosage: TAKE THREE TABLETS (1500 MG TOTAL) BY MOUTH TWICE DAILY FOR 14 DAYS FOLLOWED BY 7 DAYS OFF THEN REPE
     Route: 048
     Dates: start: 20200615
  20. SENNOSIDES. [Concomitant]
     Active Substance: SENNOSIDES
     Route: 048
     Dates: start: 20200902
  21. LASIX [Concomitant]
     Active Substance: FUROSEMIDE
     Route: 048
     Dates: start: 202009

REACTIONS (12)
  - Intentional product use issue [Unknown]
  - Fluid retention [Recovered/Resolved]
  - Off label use [Unknown]
  - Chills [Unknown]
  - Pain in extremity [Unknown]
  - Hypoaesthesia [Unknown]
  - Neutropenia [Unknown]
  - Paraesthesia [Unknown]
  - Anaemia [Unknown]
  - Skin exfoliation [Recovering/Resolving]
  - COVID-19 [Recovering/Resolving]
  - White blood cell count decreased [Not Recovered/Not Resolved]

NARRATIVE: CASE EVENT DATE: 20201026
